FAERS Safety Report 21712614 (Version 1)
Quarter: 2022Q4

REPORT INFORMATION
  Report Type: Spontaneous
  Country: US (occurrence: None)
  Receive Date: 20221211
  Receipt Date: 20221211
  Transmission Date: 20230112
  Serious: Yes (Disabling)
  Sender: FDA-Public Use
  Company Number: None

PATIENT
  Age: 44 Year
  Sex: Male

DRUGS (1)
  1. PAXLOVID [Suspect]
     Active Substance: NIRMATRELVIR\RITONAVIR
     Indication: COVID-19 treatment
     Dosage: OTHER QUANTITY : 3 TABLET(S);?FREQUENCY : TWICE A DAY;?
     Route: 048
     Dates: start: 20221203, end: 20221207

REACTIONS (6)
  - Cough [None]
  - Oropharyngeal pain [None]
  - Pain [None]
  - Chills [None]
  - Upper-airway cough syndrome [None]
  - Rebound effect [None]

NARRATIVE: CASE EVENT DATE: 20221210
